FAERS Safety Report 4561304-5 (Version None)
Quarter: 2005Q1

REPORT INFORMATION
  Report Type: 
  Country: None (occurrence: None)
  Receive Date: 20050121
  Receipt Date: 20050104
  Transmission Date: 20050727
  Serious: Yes (Life-Threatening, Hospitalization)
  Sender: FDA-Public Use
  Company Number: F01200403741

PATIENT
  Age: 68 Year
  Sex: Male

DRUGS (4)
  1. OXALIPLATIN - SOLUTION - 130 MG/M2 [Suspect]
     Indication: COLORECTAL CANCER METASTATIC
     Dosage: 243 MG Q3W INTRAVENOUS NOS
     Route: 042
     Dates: start: 20041110, end: 20041110
  2. CAPECITABINE - TABLET - 1000 MG/M2 [Suspect]
     Dosage: 3600 MG (1000 MG/M2 TWICE DAILY FROM DAY 1 TO DAY 15, Q3W) ORAL
     Route: 048
     Dates: start: 20041110, end: 20041119
  3. ENOXAPARIN SODIUM [Concomitant]
  4. EMCONCOR (BISOPROLOL) [Concomitant]

REACTIONS (11)
  - APHASIA [None]
  - BRAIN OEDEMA [None]
  - CEREBRAL HAEMATOMA [None]
  - FALL [None]
  - HAEMATURIA [None]
  - HAEMOGLOBIN DECREASED [None]
  - HEMIPARESIS [None]
  - PLATELET COUNT DECREASED [None]
  - PROTHROMBIN TIME PROLONGED [None]
  - SYNCOPE [None]
  - WHITE BLOOD CELL COUNT DECREASED [None]
